FAERS Safety Report 24861832 (Version 3)
Quarter: 2025Q2

REPORT INFORMATION
  Report Type: Other
  Country: US (occurrence: US)
  Receive Date: 20250120
  Receipt Date: 20250429
  Transmission Date: 20250717
  Serious: No
  Sender: TRAVERE THERAPEUTICS
  Company Number: US-TRAVERE-2025TVT00007

PATIENT
  Age: 30 Year
  Sex: Male

DRUGS (2)
  1. FILSPARI [Suspect]
     Active Substance: SPARSENTAN
     Indication: Essential hypertension
     Dosage: 1 TABLET, ONCE A DAILY FOR DAYS 1-14
     Route: 048
     Dates: start: 202412
  2. FILSPARI [Suspect]
     Active Substance: SPARSENTAN
     Indication: IgA nephropathy
     Dosage: 2 TABLETS, ONCE A DAILY ON DAYS 15-30
     Route: 048
     Dates: start: 202412

REACTIONS (3)
  - Pollakiuria [Unknown]
  - Headache [Unknown]
  - Hepatic enzyme increased [Recovered/Resolved]

NARRATIVE: CASE EVENT DATE: 20241201
